FAERS Safety Report 7606999-4 (Version None)
Quarter: 2011Q3

REPORT INFORMATION
  Report Type: 
  Country: None (occurrence: None)
  Receive Date: 20110713
  Receipt Date: 20110705
  Transmission Date: 20111222
  Serious: Yes (Hospitalization)
  Sender: FDA-Public Use
  Company Number: DE-ABBOTT-11P-062-0837082-00

PATIENT
  Age: 71 Year
  Sex: Male

DRUGS (5)
  1. PHENPROCOUMON [Concomitant]
     Indication: PRODUCT USED FOR UNKNOWN INDICATION
     Dosage: 1.5 - 3 MG
     Route: 048
     Dates: start: 20100101
  2. VALPROATE SODIUM [Suspect]
     Indication: CONVULSION
     Dosage: UNKNOWN
     Route: 048
     Dates: start: 20101222, end: 20101223
  3. SIMVASTATIN [Concomitant]
     Indication: PRODUCT USED FOR UNKNOWN INDICATION
     Dates: start: 20050101
  4. VALPROATE SODIUM [Suspect]
     Indication: EPILEPSY
     Dosage: UNKNOWN
     Route: 048
     Dates: start: 20101111, end: 20101221
  5. TIZANIDINE HCL [Suspect]
     Indication: PRODUCT USED FOR UNKNOWN INDICATION
     Dosage: UNKNOWN
     Route: 048
     Dates: start: 20101111, end: 20101219

REACTIONS (8)
  - ENCEPHALOPATHY [None]
  - DISORIENTATION [None]
  - RESTLESSNESS [None]
  - MUSCLE RIGIDITY [None]
  - DELIRIUM [None]
  - DISTURBANCE IN ATTENTION [None]
  - ILLUSION [None]
  - POSTURE ABNORMAL [None]
